FAERS Safety Report 7941822-X (Version None)
Quarter: 2011Q4

REPORT INFORMATION
  Report Type: 
  Country: None (occurrence: None)
  Receive Date: 20111122
  Receipt Date: 20111122
  Transmission Date: 20120403
  Serious: Yes (Other)
  Sender: FDA-Public Use
  Company Number: None

PATIENT
  Age: 49 Year
  Sex: Female

DRUGS (1)
  1. VICTRELIS [Suspect]
     Dosage: 600MG TID PO WITH FOOD
     Route: 048
     Dates: start: 20110924, end: 20111119

REACTIONS (1)
  - EYE DISCHARGE [None]
